FAERS Safety Report 10081109 (Version 1)
Quarter: 2014Q2

REPORT INFORMATION
  Report Type: Spontaneous
  Country: US (occurrence: None)
  Receive Date: 20140415
  Receipt Date: 20140415
  Transmission Date: 20141212
  Serious: Yes (Hospitalization)
  Sender: FDA-Public Use
  Company Number: None

PATIENT
  Age: 47 Year
  Sex: Male
  Weight: 100.7 kg

DRUGS (3)
  1. FLUOROURACIL [Suspect]
  2. TAXOL [Suspect]
     Route: 042
  3. HYDREA [Concomitant]

REACTIONS (5)
  - Dysphagia [None]
  - Hypokalaemia [None]
  - Hypocalcaemia [None]
  - Hypophagia [None]
  - Pyrexia [None]
